FAERS Safety Report 10594624 (Version 1)
Quarter: 2014Q4

REPORT INFORMATION
  Report Type: Spontaneous
  Country: US (occurrence: US)
  Receive Date: 20141120
  Receipt Date: 20141120
  Transmission Date: 20150529
  Serious: No
  Sender: FDA-Public Use
  Company Number: US-TEVA-502186USA

PATIENT
  Sex: Female

DRUGS (1)
  1. BUDESONIDE. [Suspect]
     Active Substance: BUDESONIDE
     Route: 055
     Dates: start: 201406

REACTIONS (9)
  - Insomnia [Unknown]
  - Vision blurred [Unknown]
  - Blood pressure fluctuation [Unknown]
  - Pruritus [Unknown]
  - Dermatitis contact [Unknown]
  - Tremor [Unknown]
  - Dry skin [Unknown]
  - Urticaria [Unknown]
  - Alopecia [Unknown]
